FAERS Safety Report 9631821 (Version 3)
Quarter: 2013Q4

REPORT INFORMATION
  Report Type: Spontaneous
  Country: IE (occurrence: IE)
  Receive Date: 20131018
  Receipt Date: 20131119
  Transmission Date: 20140711
  Serious: Yes (Other)
  Sender: FDA-Public Use
  Company Number: IE-ACTAVIS-2013-17793

PATIENT
  Age: 73 Year
  Sex: Male
  Weight: 86 kg

DRUGS (12)
  1. DOCETAXEL ACTAVIS [Suspect]
     Indication: PROSTATE CANCER
     Dosage: 100 MG X 3 DOSES
     Route: 042
     Dates: start: 20130523
  2. DOCETAXEL ACTAVIS [Suspect]
     Dosage: 80 MG X 5 DOSES
     Route: 042
  3. DOCETAXEL ACTAVIS [Suspect]
     Dosage: 60 MG X 2 DOSES
     Route: 042
  4. ASPIRIN [Concomitant]
     Indication: MYOCARDIAL ISCHAEMIA
     Dosage: UNK
     Route: 065
  5. BISOPROLOL [Concomitant]
     Indication: MYOCARDIAL ISCHAEMIA
     Dosage: UNK
     Route: 065
  6. DELTACORTRIL                       /00016201/ [Concomitant]
     Indication: MYOCARDIAL ISCHAEMIA
     Dosage: UNK
     Route: 065
  7. RANEXA [Concomitant]
     Indication: MYOCARDIAL ISCHAEMIA
     Dosage: UNK
     Route: 065
  8. CALCIUM VITAMINE D3 [Concomitant]
     Indication: MYOCARDIAL ISCHAEMIA
     Dosage: UNK
     Route: 065
  9. ROSUVASTATIN [Concomitant]
     Indication: MYOCARDIAL ISCHAEMIA
     Dosage: UNK
     Route: 065
  10. DIFENE [Concomitant]
     Indication: MYOCARDIAL ISCHAEMIA
     Dosage: UNK
     Route: 065
  11. GLYTRIN [Concomitant]
     Indication: MYOCARDIAL ISCHAEMIA
     Dosage: UNK
     Route: 065
  12. PROSTAP [Concomitant]
     Indication: PROSTATE CANCER
     Dosage: UNK
     Route: 065

REACTIONS (6)
  - Onycholysis [Not Recovered/Not Resolved]
  - Onychomadesis [Not Recovered/Not Resolved]
  - Localised infection [Not Recovered/Not Resolved]
  - Nail discolouration [Not Recovered/Not Resolved]
  - Wound secretion [Not Recovered/Not Resolved]
  - Hypoaesthesia [Not Recovered/Not Resolved]
